FAERS Safety Report 8478018-1 (Version None)
Quarter: 2012Q2

REPORT INFORMATION
  Report Type: 
  Country: None (occurrence: None)
  Receive Date: 20120629
  Receipt Date: 20120618
  Transmission Date: 20120825
  Serious: No
  Sender: FDA-Public Use
  Company Number: US-ASTRAZENECA-2011SE27741

PATIENT
  Age: 62 Year
  Sex: Female

DRUGS (2)
  1. NEXIUM [Suspect]
     Dosage: SOMETIMES HAD TO TAKE TWO
     Route: 048
  2. NEXIUM [Suspect]
     Dosage: ONCE DAILY
     Route: 048

REACTIONS (7)
  - DYSPHONIA [None]
  - DRUG DOSE OMISSION [None]
  - DYSPEPSIA [None]
  - GASTROOESOPHAGEAL REFLUX DISEASE [None]
  - INTENTIONAL DRUG MISUSE [None]
  - DRUG EFFECT DECREASED [None]
  - BARRETT'S OESOPHAGUS [None]
